FAERS Safety Report 20198626 (Version 1)
Quarter: 2021Q4

REPORT INFORMATION
  Report Type: Spontaneous
  Country: US (occurrence: US)
  Receive Date: 20211217
  Receipt Date: 20211217
  Transmission Date: 20220303
  Serious: No
  Sender: FDA-Public Use
  Company Number: US-ALLERGAN-2139617US

PATIENT
  Sex: Male
  Weight: 110 kg

DRUGS (1)
  1. DALVANCE [Suspect]
     Active Substance: DALBAVANCIN
     Indication: Product used for unknown indication
     Dosage: ACTUAL: 500MG
     Route: 042
     Dates: start: 20211113, end: 20211113

REACTIONS (2)
  - Administration site extravasation [Unknown]
  - Administration site cellulitis [Unknown]

NARRATIVE: CASE EVENT DATE: 20211115
